FAERS Safety Report 9492161 (Version 4)
Quarter: 2013Q4

REPORT INFORMATION
  Report Type: Spontaneous
  Country: US (occurrence: US)
  Receive Date: 20130830
  Receipt Date: 20131011
  Transmission Date: 20140711
  Serious: No
  Sender: FDA-Public Use
  Company Number: US-PFIZER INC-2012114163

PATIENT
  Age: 67 Year
  Sex: Female

DRUGS (14)
  1. PREMARIN [Suspect]
     Dosage: 0.625 MG, ALTERNATE DAY (1 DOSE ^V^ EVERY OTHER DAY)
     Route: 067
  2. SIMVASTATIN [Concomitant]
     Dosage: 40 MG, TAKE 1 DAILY IN THE EVENING
     Route: 048
  3. ATIVAN [Concomitant]
     Dosage: 2 MG, 3X/DAY, AS REQUIRED
     Route: 048
  4. LASIX [Concomitant]
     Dosage: 20 MG, DAILY (1)
     Route: 048
  5. NEXIUM [Concomitant]
     Dosage: 40 MG, 1X/DAY
     Route: 048
  6. ULTRAM [Concomitant]
     Dosage: UNK
  7. GLUCOPHAGE [Concomitant]
     Dosage: UNK
  8. CLIDINIUM BROMIDE/CHLORDIAZEPOXIDE HYDROCHLORIDE [Concomitant]
     Dosage: 2.5-5MG CAPSULE, 1 CAPSULE 3XDAY
     Route: 048
  9. DIFLUCAN [Concomitant]
     Dosage: 100 MG, DAILY (1)
     Route: 048
  10. ANTIVERT [Concomitant]
     Dosage: 25 MG, 3X/DAY, AS REQUIRED
     Route: 048
  11. CHLORDIAZEPOXIDE/CLIDINIUM [Concomitant]
     Dosage: 1 DF (5-2.5MG), 3X/DAY (BEFORE MEALS)
     Route: 048
  12. GLYBURIDE [Concomitant]
     Dosage: 10 MG, 2X/DAY
     Route: 048
  13. TRAMADOL HYDROCHLORIDE [Concomitant]
     Dosage: 50 MG, AS NEEDED (1-2 TABLETS EVERY 6 HRS)
     Route: 048
  14. FUROSEMIDE [Concomitant]
     Dosage: 20 MG, 2X/DAY
     Route: 048

REACTIONS (1)
  - Pain [Unknown]
